FAERS Safety Report 8855440 (Version 2)
Quarter: 2012Q4

REPORT INFORMATION
  Report Type: 
  Country: US (occurrence: US)
  Receive Date: 20121023
  Receipt Date: 20121107
  Transmission Date: 20130627
  Serious: No
  Sender: FDA-Public Use
  Company Number: US-AMGEN-USASP2012059425

PATIENT
  Age: 29 Year
  Sex: Female
  Weight: 55.78 kg

DRUGS (2)
  1. ENBREL [Suspect]
     Indication: ANKYLOSING SPONDYLITIS
     Dosage: UNK
     Route: 058
     Dates: start: 20041010, end: 201109
  2. ENBREL [Suspect]
     Indication: PSORIATIC ARTHROPATHY

REACTIONS (3)
  - Pregnancy [Recovered/Resolved]
  - Psoriatic arthropathy [Recovered/Resolved]
  - Psoriasis [Recovered/Resolved]
